FAERS Safety Report 21243597 (Version 2)
Quarter: 2022Q3

REPORT INFORMATION
  Report Type: Spontaneous
  Country: BR (occurrence: BR)
  Receive Date: 20220823
  Receipt Date: 20220909
  Transmission Date: 20221026
  Serious: Yes (Death, Life-Threatening, Other)
  Sender: FDA-Public Use
  Company Number: BR-BRACCO-2022BR03235

PATIENT
  Age: 88 Year
  Sex: Male

DRUGS (5)
  1. IOPAMIRON [Suspect]
     Active Substance: IOPAMIDOL
     Indication: Computerised tomogram abdomen
     Dosage: 130 ML, SINGLE
     Route: 042
     Dates: start: 20220812, end: 20220812
  2. XARELTO [Concomitant]
     Active Substance: RIVAROXABAN
  3. DOXAZOSIN [Concomitant]
     Active Substance: DOXAZOSIN MESYLATE
  4. METOPROLOL SUCCINATE [Concomitant]
     Active Substance: METOPROLOL SUCCINATE
  5. ROSUVASTATIN CALCIUM [Concomitant]
     Active Substance: ROSUVASTATIN CALCIUM

REACTIONS (2)
  - Cardio-respiratory arrest [Fatal]
  - Malaise [Fatal]

NARRATIVE: CASE EVENT DATE: 20220812
